FAERS Safety Report 9050730 (Version 1)
Quarter: 2013Q1

REPORT INFORMATION
  Report Type: Spontaneous
  Country: FR (occurrence: FR)
  Receive Date: 20130205
  Receipt Date: 20130205
  Transmission Date: 20140127
  Serious: Yes (Hospitalization, Other)
  Sender: FDA-Public Use
  Company Number: FR-BAYER-2012-114294

PATIENT
  Age: 39 Year
  Sex: Female

DRUGS (13)
  1. CIFLOX [Suspect]
     Dosage: 750 MG, UNK
     Route: 048
     Dates: start: 20120920, end: 20120929
  2. NEURONTIN [Suspect]
     Dosage: 600 MG, QD
     Route: 048
     Dates: start: 20120914, end: 20121004
  3. VANCOMYCIN [Suspect]
     Dosage: UNK
     Route: 042
     Dates: start: 20120917, end: 20121001
  4. FORTUM [Suspect]
     Dosage: 2 G, TID
     Route: 042
     Dates: start: 20120920, end: 20120929
  5. ATARAX [Concomitant]
  6. XANAX [Concomitant]
     Dosage: 0.5 MG, UNK
  7. AZANTAC [Concomitant]
     Dosage: 300 MG, UNK
  8. CODEINE W/PARACETAMOL [Concomitant]
  9. IXPRIM [Concomitant]
  10. LOVENOX [Concomitant]
  11. PYOSTACINE [Concomitant]
     Dosage: 1 G, TID
     Route: 048
     Dates: start: 20120915, end: 20120917
  12. GENTAMICINE [Concomitant]
     Indication: PRODUCT USED FOR UNKNOWN INDICATION
     Dosage: 500 MG, QD
     Route: 042
     Dates: start: 20120917, end: 20120919
  13. FLAGYL [Concomitant]
     Dosage: UNK UNK, TID
     Route: 048
     Dates: start: 20120917, end: 20120919

REACTIONS (1)
  - Toxic skin eruption [Recovered/Resolved]
